FAERS Safety Report 7277616-0 (Version None)
Quarter: 2011Q1

REPORT INFORMATION
  Report Type: 
  Country: None (occurrence: None)
  Receive Date: 20110207
  Receipt Date: 20110121
  Transmission Date: 20110831
  Serious: Yes (Hospitalization)
  Sender: FDA-Public Use
  Company Number: US-JNJFOC-20101208302

PATIENT
  Sex: Female
  Weight: 91.16 kg

DRUGS (12)
  1. GLUCOTROL [Concomitant]
  2. IBUPROFEN [Suspect]
     Indication: ARTHRITIS
     Route: 048
  3. ZYRTEC [Concomitant]
  4. METFORMIN [Concomitant]
  5. FUROSEMIDE [Concomitant]
  6. BENAZEPRIL HYDROCHLORIDE [Concomitant]
  7. CLONIDINE [Concomitant]
  8. NORVASC [Concomitant]
  9. ALBUTEROL [Concomitant]
  10. LOTREL [Concomitant]
  11. CALCIUM [Concomitant]
  12. CENTRUM MULTIVITAMINS [Concomitant]

REACTIONS (2)
  - GASTROINTESTINAL HAEMORRHAGE [None]
  - COLONIC POLYP [None]
